FAERS Safety Report 10029770 (Version 1)
Quarter: 2014Q1

REPORT INFORMATION
  Report Type: Spontaneous
  Country: US (occurrence: None)
  Receive Date: 20140321
  Receipt Date: 20140321
  Transmission Date: 20141002
  Serious: Yes (Other)
  Sender: FDA-Public Use
  Company Number: None

PATIENT
  Age: 7 Month
  Sex: Male
  Weight: 6.3 kg

DRUGS (12)
  1. PENTAMIDINE [Suspect]
     Indication: ANTIFUNGAL PROPHYLAXIS
     Route: 042
     Dates: start: 20140319, end: 20140319
  2. TACROLIMUS [Concomitant]
  3. PREDNISOLONE [Concomitant]
  4. ASPIRIN [Concomitant]
  5. CIPROFLOXACIN [Concomitant]
  6. FUROSEMIDE [Concomitant]
  7. MAGNESIUM CARBONATE [Concomitant]
  8. NYSTATIN [Concomitant]
  9. VALGANCICLOVIR [Concomitant]
  10. RANITIDINE [Concomitant]
  11. OXYCODONE [Concomitant]
  12. LORAZEPAM [Concomitant]

REACTIONS (2)
  - Tachycardia [None]
  - Infusion related reaction [None]
